FAERS Safety Report 5496780-7 (Version None)
Quarter: 2007Q4

REPORT INFORMATION
  Report Type: 
  Country: None (occurrence: None)
  Receive Date: 20071025
  Receipt Date: 20070814
  Transmission Date: 20080405
  Serious: No
  Sender: FDA-Public Use
  Company Number: A0670172A

PATIENT
  Age: 58 Year
  Sex: Male

DRUGS (11)
  1. ADVAIR DISKUS 100/50 [Suspect]
     Indication: CHRONIC OBSTRUCTIVE PULMONARY DISEASE
     Dosage: 1PUFF TWICE PER DAY
     Route: 055
     Dates: start: 20070801
  2. PLAVIX [Concomitant]
  3. TOPROL-XL [Concomitant]
  4. LIPITOR [Concomitant]
  5. DIGITEK [Concomitant]
  6. LISINOPRIL [Concomitant]
  7. COUMADIN [Concomitant]
  8. SPIRONOLACTONE [Concomitant]
  9. PROTONIX [Concomitant]
  10. NITROGLYCERIN [Concomitant]
  11. COMBIVENT [Concomitant]

REACTIONS (4)
  - CHEST DISCOMFORT [None]
  - DRUG INEFFECTIVE [None]
  - EXPIRED DRUG ADMINISTERED [None]
  - ILL-DEFINED DISORDER [None]
